FAERS Safety Report 22190244 (Version 8)
Quarter: 2023Q2

REPORT INFORMATION
  Report Type: Report from Study
  Country: CN (occurrence: CN)
  Receive Date: 20230410
  Receipt Date: 20230518
  Transmission Date: 20230722
  Serious: Yes (Other)
  Sender: FDA-Public Use
  Company Number: CN-BIOVITRUM-2023-CN-008582

PATIENT
  Age: 2 Year
  Sex: Male
  Weight: 14.4 kg

DRUGS (25)
  1. EMAPALUMAB [Suspect]
     Active Substance: EMAPALUMAB
     Indication: Familial haemophagocytic lymphohistiocytosis
     Dosage: 2/W
     Dates: start: 20230203, end: 20230203
  2. EMAPALUMAB [Suspect]
     Active Substance: EMAPALUMAB
     Dosage: 2/W
     Dates: start: 20230207, end: 20230207
  3. EMAPALUMAB [Suspect]
     Active Substance: EMAPALUMAB
     Dosage: 2/W
     Dates: start: 20230210, end: 20230210
  4. EMAPALUMAB [Suspect]
     Active Substance: EMAPALUMAB
     Dosage: 2/W
     Dates: start: 20230214, end: 20230214
  5. EMAPALUMAB [Suspect]
     Active Substance: EMAPALUMAB
     Dosage: 2/W
     Dates: start: 20230217, end: 20230217
  6. EMAPALUMAB [Suspect]
     Active Substance: EMAPALUMAB
     Dosage: 2/W
     Dates: start: 20230221, end: 20230221
  7. EMAPALUMAB [Suspect]
     Active Substance: EMAPALUMAB
     Dosage: 2/W
     Dates: start: 20230224, end: 20230224
  8. EMAPALUMAB [Suspect]
     Active Substance: EMAPALUMAB
     Dosage: 2/W
     Dates: start: 20230228, end: 20230228
  9. EMAPALUMAB [Suspect]
     Active Substance: EMAPALUMAB
     Dosage: 2/W
     Dates: start: 20230303, end: 20230303
  10. EMAPALUMAB [Suspect]
     Active Substance: EMAPALUMAB
     Dosage: 2/W
     Dates: start: 20230307, end: 20230307
  11. EMAPALUMAB [Suspect]
     Active Substance: EMAPALUMAB
     Dosage: 2/W
     Dates: start: 20230314, end: 20230314
  12. EMAPALUMAB [Suspect]
     Active Substance: EMAPALUMAB
     Dosage: 2/W
     Dates: start: 20230317, end: 20230317
  13. EMAPALUMAB [Suspect]
     Active Substance: EMAPALUMAB
     Dosage: 2/W
     Dates: start: 20230321, end: 20230321
  14. EMAPALUMAB [Suspect]
     Active Substance: EMAPALUMAB
     Dosage: 2/W
     Dates: start: 20230324, end: 20230324
  15. EMAPALUMAB [Suspect]
     Active Substance: EMAPALUMAB
     Dosage: 2/W
     Dates: start: 20230328, end: 20230328
  16. EMAPALUMAB [Suspect]
     Active Substance: EMAPALUMAB
     Dosage: 2/W
     Dates: start: 20230331, end: 20230331
  17. EMAPALUMAB [Suspect]
     Active Substance: EMAPALUMAB
     Dosage: 2/W
     Dates: start: 20230404, end: 20230404
  18. EMAPALUMAB [Suspect]
     Active Substance: EMAPALUMAB
     Dosage: 2/W
     Dates: start: 20230414, end: 20230414
  19. EMAPALUMAB [Suspect]
     Active Substance: EMAPALUMAB
     Dosage: 2/W
     Dates: start: 20230418, end: 20230418
  20. METHYLPREDNISOLONE SODIUM SUCCINATE [Concomitant]
     Active Substance: METHYLPREDNISOLONE SODIUM SUCCINATE
     Indication: Adjuvant therapy
     Dates: start: 20230203, end: 20230203
  21. ACYCLOVIR [Concomitant]
     Active Substance: ACYCLOVIR
     Indication: Antiviral prophylaxis
     Route: 048
     Dates: start: 20230202
  22. Compound Sulfamethoxazole Tablet [Concomitant]
     Indication: Infection prophylaxis
     Route: 048
     Dates: start: 20230228
  23. Calcium Carbonate and Vit D3 Granule [Concomitant]
     Indication: Calcium deficiency
     Route: 048
     Dates: start: 20230128
  24. Iron Proteinsuccinylate Oral Solution [Concomitant]
     Indication: Iron deficiency anaemia
     Route: 048
     Dates: start: 20230331
  25. Human Immunoglobulin (pH4) for Intravenous Injection [Concomitant]
     Indication: Infection prophylaxis

REACTIONS (1)
  - Pneumonia [Not Recovered/Not Resolved]

NARRATIVE: CASE EVENT DATE: 20230330
